FAERS Safety Report 22180205 (Version 3)
Quarter: 2023Q2

REPORT INFORMATION
  Report Type: Spontaneous
  Country: CA (occurrence: CA)
  Receive Date: 20230406
  Receipt Date: 20230519
  Transmission Date: 20230721
  Serious: Yes (Other)
  Sender: FDA-Public Use
  Company Number: CA-009507513-2011CAN007651

PATIENT
  Age: 74 Year
  Sex: Female

DRUGS (35)
  1. SINGULAIR [Suspect]
     Active Substance: MONTELUKAST SODIUM
     Indication: Product used for unknown indication
     Dosage: UNK, DOSAGE FORM: NOT SPECIFIED
     Route: 065
  2. ZENHALE [Suspect]
     Active Substance: FORMOTEROL FUMARATE\MOMETASONE FUROATE
     Indication: Product used for unknown indication
     Dosage: 2 DOSAGE FORMS, 2 EVERY 1 DAYS; DOSAGE FORM AEROSOL METERED DOSE
     Route: 065
  3. ZENHALE [Suspect]
     Active Substance: FORMOTEROL FUMARATE\MOMETASONE FUROATE
     Dosage: 2 DOSAGE FORMS, 2 EVERY 1 DAYS; DOSAGE FORM AEROSOL METERED DOSE
     Route: 065
  4. BUDESONIDE [Suspect]
     Active Substance: BUDESONIDE
     Indication: Product used for unknown indication
     Dosage: UNK, DOSAGE FORM: NOT SPECIFIED
     Route: 065
  5. BUDESONIDE [Suspect]
     Active Substance: BUDESONIDE
     Dosage: UNK, 2 EVERY 1 DAYS
     Route: 065
  6. NUCALA [Suspect]
     Active Substance: MEPOLIZUMAB
     Indication: Asthma
     Dosage: 100 MILLIGRAM, ROUTE: INTRAVENOUS (NOT OTHERWISE SPECIFIED)
     Route: 042
  7. NUCALA [Suspect]
     Active Substance: MEPOLIZUMAB
     Indication: Product used for unknown indication
     Dosage: 100 MILLIGRAM, ROUTE: INTRAVENOUS (NOT OTHERWISE SPECIFIED)
     Route: 042
  8. NUCALA [Suspect]
     Active Substance: MEPOLIZUMAB
     Dosage: 100 MILLIGRAM, ROUTE: INTRAVENOUS (NOT OTHERWISE SPECIFIED)
     Route: 042
  9. NUCALA [Suspect]
     Active Substance: MEPOLIZUMAB
     Dosage: 100 MILLIGRAM, ROUTE: INTRAVENOUS (NOT OTHERWISE SPECIFIED)
     Route: 042
  10. NUCALA [Suspect]
     Active Substance: MEPOLIZUMAB
     Dosage: 100 MILLIGRAM, ROUTE: INTRAVENOUS (NOT OTHERWISE SPECIFIED)
     Route: 042
  11. NUCALA [Suspect]
     Active Substance: MEPOLIZUMAB
     Dosage: 100 MILLIGRAM, ROUTE: INTRAVENOUS (NOT OTHERWISE SPECIFIED)
     Route: 042
  12. NUCALA [Suspect]
     Active Substance: MEPOLIZUMAB
     Dosage: 100 MILLIGRAM, ROUTE: INTRAVENOUS (NOT OTHERWISE SPECIFIED)
     Route: 042
  13. NUCALA [Suspect]
     Active Substance: MEPOLIZUMAB
     Dosage: 100 MILLIGRAM, ROUTE: INTRAVENOUS (NOT OTHERWISE SPECIFIED)
     Route: 042
  14. NUCALA [Suspect]
     Active Substance: MEPOLIZUMAB
     Dosage: 100 MILLIGRAM, ROUTE: INTRAVENOUS (NOT OTHERWISE SPECIFIED)
     Route: 042
  15. NUCALA [Suspect]
     Active Substance: MEPOLIZUMAB
     Dosage: 100 MILLIGRAM, ROUTE: INTRAVENOUS (NOT OTHERWISE SPECIFIED)
     Route: 042
  16. NUCALA [Suspect]
     Active Substance: MEPOLIZUMAB
     Dosage: 100 MILLIGRAM, ROUTE: INTRAVENOUS (NOT OTHERWISE SPECIFIED)
     Route: 042
  17. NUCALA [Suspect]
     Active Substance: MEPOLIZUMAB
     Dosage: 100 MILLIGRAM, ROUTE: INTRAVENOUS (NOT OTHERWISE SPECIFIED)
     Route: 042
  18. PREDNISONE [Suspect]
     Active Substance: PREDNISONE
     Indication: Product used for unknown indication
     Dosage: 1 MILLIGRAM, 2 EVERY 1 DAYS ,DOSAGE FORM: NOT SPECIFIED
     Route: 048
  19. PREDNISONE [Suspect]
     Active Substance: PREDNISONE
     Dosage: 2.5 MILLIGRAM, 2 EVERY 1 DAYS, DOSAGE FORM: NOT SPECIFIED
     Route: 048
  20. PREDNISONE [Suspect]
     Active Substance: PREDNISONE
     Dosage: 1 MILLIGRAM, 2 EVERY 1 DAYS, DOSAGE FORM: NOT SPECIFIED
     Route: 048
  21. PREDNISONE [Suspect]
     Active Substance: PREDNISONE
     Dosage: 2.5 MILLIGRAM, 2 EVERY 1 DAYS
     Route: 048
  22. PREDNISONE [Suspect]
     Active Substance: PREDNISONE
     Dosage: 2.5 MILLIGRAM, 2 EVERY 1 DAYS
     Route: 048
  23. PREDNISONE [Suspect]
     Active Substance: PREDNISONE
     Dosage: 1 MILLIGRAM, 2 EVERY 1 DAYS
     Route: 048
  24. PREDNISONE [Suspect]
     Active Substance: PREDNISONE
     Dosage: 1 MILLIGRAM, 2 EVERY 1 DAYS
     Route: 048
  25. PREDNISONE [Suspect]
     Active Substance: PREDNISONE
     Dosage: 1 MILLIGRAM, 2 EVERY 1 DAYS
     Route: 048
  26. PREDNISONE [Suspect]
     Active Substance: PREDNISONE
     Dosage: 1 MILLIGRAM, 2 EVERY 1 DAYS
     Route: 048
  27. PREDNISONE [Suspect]
     Active Substance: PREDNISONE
     Dosage: 1 MILLIGRAM
     Route: 048
  28. PREDNISONE [Suspect]
     Active Substance: PREDNISONE
     Dosage: 2.5 MILLIGRAM,(DOSAGE FORM:NOT SPECIFIED)
     Route: 048
  29. PREDNISONE [Suspect]
     Active Substance: PREDNISONE
     Dosage: 2.5 MILLIGRAM
     Route: 048
  30. VENTOLIN [Suspect]
     Active Substance: ALBUTEROL SULFATE
     Indication: Product used for unknown indication
     Dosage: UNK, DOSAGE FORM: NOT SPECIFIED
     Route: 065
  31. VENTOLIN [Suspect]
     Active Substance: ALBUTEROL SULFATE
     Dosage: UNK
     Route: 065
  32. FORMOTEROL [Suspect]
     Active Substance: FORMOTEROL
     Indication: Product used for unknown indication
     Dosage: 2 DOSAGE FORMS, 2 EVERY 1 DAYS
     Route: 065
  33. FORMOTEROL [Suspect]
     Active Substance: FORMOTEROL
     Dosage: 2 DOSAGE FORMS, 2 EVERY 1 DAYS
     Route: 065
  34. FORMOTEROL [Suspect]
     Active Substance: FORMOTEROL
     Dosage: 2 DOSAGE FORMS
     Route: 065
  35. FORMOTEROL [Suspect]
     Active Substance: FORMOTEROL
     Dosage: 2 DOSAGE FORMS
     Route: 065

REACTIONS (10)
  - Asthma [Recovered/Resolved]
  - Asthmatic crisis [Recovered/Resolved]
  - Bronchitis [Recovered/Resolved]
  - Cough [Recovered/Resolved]
  - Drug dependence [Recovered/Resolved]
  - Dyspnoea [Recovered/Resolved]
  - Dyspnoea exertional [Recovered/Resolved]
  - Loss of personal independence in daily activities [Recovered/Resolved]
  - Sinusitis [Recovered/Resolved]
  - Wheezing [Recovered/Resolved]
